FAERS Safety Report 5139864-5 (Version None)
Quarter: 2006Q4

REPORT INFORMATION
  Report Type: 
  Country: None (occurrence: None)
  Receive Date: 20061025
  Receipt Date: 20061025
  Transmission Date: 20070319
  Serious: Yes (Hospitalization)
  Sender: FDA-Public Use
  Company Number: None

PATIENT
  Age: 71 Year
  Sex: Male
  Weight: 122.4712 kg

DRUGS (3)
  1. ATENOLOL [Suspect]
     Dosage: 150 MG PO QD
     Route: 048
  2. CLONIDINE [Suspect]
     Dosage: 0.6 MG WEEKLY
  3. LISINOPRIL [Suspect]
     Dosage: 80 MG PO QD
     Route: 048

REACTIONS (2)
  - HYPOTENSION [None]
  - OVERDOSE [None]
